FAERS Safety Report 13734287 (Version 1)
Quarter: 2017Q3

REPORT INFORMATION
  Report Type: Spontaneous
  Country: SE (occurrence: SE)
  Receive Date: 20170708
  Receipt Date: 20170708
  Transmission Date: 20171127
  Serious: Yes (Hospitalization)
  Sender: FDA-Public Use
  Company Number: SE-TEVA-782313ACC

PATIENT
  Age: 36 Year
  Sex: Female

DRUGS (3)
  1. SUBUTEX [Suspect]
     Active Substance: BUPRENORPHINE HYDROCHLORIDE
     Dosage: 8 PIECES
     Dates: start: 20170615, end: 20170615
  2. STESOLID [Suspect]
     Active Substance: DIAZEPAM
     Dosage: 10 MILLIGRAM LIKELY 10 PIECES
     Dates: start: 20170615, end: 20170615
  3. ALVEDON [Suspect]
     Active Substance: ACETAMINOPHEN
     Dosage: A TOTAL AMOUNT OF 10G
     Dates: start: 20170615, end: 20170615

REACTIONS (2)
  - Intentional overdose [Unknown]
  - Toxicity to various agents [Unknown]

NARRATIVE: CASE EVENT DATE: 20170615
